FAERS Safety Report 6469616-5 (Version None)
Quarter: 2009Q4

REPORT INFORMATION
  Report Type: 
  Country: None (occurrence: None)
  Receive Date: 20091203
  Receipt Date: 20091125
  Transmission Date: 20100525
  Serious: Yes (Other)
  Sender: FDA-Public Use
  Company Number: US-TEVA-216356USA

PATIENT
  Sex: Female

DRUGS (1)
  1. CIMETIDINE 200 MG, 300 MG + 400 MG TABLETS [Suspect]

REACTIONS (1)
  - RENAL FAILURE [None]
